FAERS Safety Report 24405207 (Version 1)
Quarter: 2024Q4

REPORT INFORMATION
  Report Type: Spontaneous
  Country: AU (occurrence: AU)
  Receive Date: 20241007
  Receipt Date: 20241007
  Transmission Date: 20250114
  Serious: No
  Sender: ROCHE
  Company Number: AU-ROCHE-3573551

PATIENT
  Age: 57 Year
  Sex: Female

DRUGS (7)
  1. OBINUTUZUMAB [Suspect]
     Active Substance: OBINUTUZUMAB
     Indication: Follicular lymphoma
     Dosage: HE RECEIVED 150MG OF OBINUTUZUMAB PRIOR TO AE.
     Route: 042
     Dates: start: 20240404
  2. ACETAMINOPHEN [Concomitant]
     Active Substance: ACETAMINOPHEN
     Route: 048
  3. LORATADINE [Concomitant]
     Active Substance: LORATADINE
     Route: 048
  4. PALONOSETRON [Concomitant]
     Active Substance: PALONOSETRON
     Route: 042
  5. DEXAMETHASONE [Concomitant]
     Active Substance: DEXAMETHASONE
     Route: 042
  6. PHENERGAN [Concomitant]
     Active Substance: PROMETHAZINE HYDROCHLORIDE
  7. PANADOL [Concomitant]
     Active Substance: ACETAMINOPHEN

REACTIONS (3)
  - Dizziness [Recovered/Resolved]
  - Dyspnoea [Recovered/Resolved]
  - Hypotension [Recovered/Resolved]

NARRATIVE: CASE EVENT DATE: 20240404
